FAERS Safety Report 4969832-5 (Version None)
Quarter: 2006Q2

REPORT INFORMATION
  Report Type: 
  Country: None (occurrence: None)
  Receive Date: 20060411
  Receipt Date: 20060404
  Transmission Date: 20061013
  Serious: Yes (Hospitalization)
  Sender: FDA-Public Use
  Company Number: FR-MERCK-0604FRA00017

PATIENT
  Age: 72 Year
  Sex: Female
  Weight: 70 kg

DRUGS (18)
  1. NOROXIN [Suspect]
     Indication: URINARY TRACT INFECTION
     Route: 048
     Dates: start: 20060207, end: 20060215
  2. KETOPROFEN [Suspect]
     Indication: ARTHRALGIA
     Route: 048
     Dates: start: 20060131, end: 20060207
  3. TETRAZEPAM [Suspect]
     Indication: ARTHRALGIA
     Route: 048
     Dates: start: 20060131, end: 20060207
  4. LORAZEPAM [Concomitant]
     Route: 048
  5. NICORANDIL [Concomitant]
     Route: 048
  6. ACAMPROSATE CALCIUM [Concomitant]
     Route: 048
  7. FLUTICASONE PROPIONATE AND SALMETEROL XINAFOATE [Concomitant]
     Route: 055
  8. RUTIN AND YELLOW SWEETCLOVER [Concomitant]
     Route: 048
  9. ALLOPURINOL [Concomitant]
     Route: 048
  10. OMEPRAZOLE [Concomitant]
     Route: 048
  11. ACETAMINOPHEN [Concomitant]
     Route: 048
  12. ALTHIAZIDE AND SPIRONOLACTONE [Concomitant]
     Route: 048
  13. FENOFIBRATE [Concomitant]
     Indication: HYPERLIPIDAEMIA
     Route: 048
  14. RISEDRONATE SODIUM [Concomitant]
     Indication: OSTEOPOROSIS
     Route: 048
  15. LEVOCETIRIZINE [Concomitant]
     Route: 048
  16. CALCIUM CARBONATE AND CHOLECALCIFEROL [Concomitant]
     Indication: ARTHRALGIA
     Route: 048
     Dates: start: 20060131, end: 20060207
  17. URIDINE 5'-TRIPHOSPHATE [Concomitant]
     Indication: ARTHRALGIA
     Route: 048
     Dates: start: 20060131, end: 20060207
  18. ACETAMINOPHEN AND TRAMADOL HYDROCHLORIDE [Concomitant]
     Route: 048

REACTIONS (5)
  - AGRANULOCYTOSIS [None]
  - MOUTH ULCERATION [None]
  - PRURITUS [None]
  - RASH MORBILLIFORM [None]
  - VAGINAL ERYTHEMA [None]
